FAERS Safety Report 6290633-2 (Version None)
Quarter: 2009Q3

REPORT INFORMATION
  Report Type: 
  Country: None (occurrence: None)
  Receive Date: 20090730
  Receipt Date: 20090720
  Transmission Date: 20100115
  Serious: Yes (Other)
  Sender: FDA-Public Use
  Company Number: PHEH2008US08911

PATIENT
  Sex: Female

DRUGS (8)
  1. AREDIA [Suspect]
     Dosage: 90MG
     Dates: end: 20080601
  2. HERCEPTIN [Concomitant]
     Dosage: 440MG
  3. ENOXAPARIN SODIUM [Concomitant]
     Dosage: 40MG
  4. PEPCID [Concomitant]
     Dosage: 20MG
  5. ZESTRIL [Concomitant]
     Dosage: 10MG
  6. DEXAMETHASONE [Concomitant]
     Dosage: 4MG
     Route: 048
  7. ARIMIDEX [Concomitant]
     Dosage: 1 MG
  8. LISINOPRIL [Concomitant]

REACTIONS (19)
  - ACTINOMYCOSIS [None]
  - ANHEDONIA [None]
  - ANXIETY [None]
  - BIOPSY BONE [None]
  - BONE FRAGMENTATION [None]
  - DISABILITY [None]
  - GINGIVAL ULCERATION [None]
  - IMPAIRED HEALING [None]
  - INJURY [None]
  - MANDIBULAR PROSTHESIS USER [None]
  - METASTASES TO BONE [None]
  - METASTASES TO LUNG [None]
  - MOUTH ULCERATION [None]
  - OSTEITIS [None]
  - OSTEOMYELITIS [None]
  - OSTEONECROSIS [None]
  - PAIN [None]
  - RADICULOPATHY [None]
  - TOOTH EXTRACTION [None]
